FAERS Safety Report 12554600 (Version 3)
Quarter: 2017Q2

REPORT INFORMATION
  Report Type: Report from Study
  Country: CA (occurrence: CA)
  Receive Date: 20160713
  Receipt Date: 20170420
  Transmission Date: 20170830
  Serious: Yes (Hospitalization, Other)
  Sender: FDA-Public Use
  Company Number: PHHY2016CA034823

PATIENT
  Age: 40 Year
  Sex: Male

DRUGS (1)
  1. SANDOSTATIN LAR DEPOT [Suspect]
     Active Substance: OCTREOTIDE ACETATE
     Indication: CARCINOID TUMOUR
     Dosage: 30 MG, QMO (ONCE A MONTH)
     Route: 030
     Dates: start: 20160209, end: 20170317

REACTIONS (14)
  - Swelling [Unknown]
  - Skin disorder [Unknown]
  - Abdominal pain upper [Unknown]
  - Arterial occlusive disease [Unknown]
  - Blood pressure diastolic increased [Unknown]
  - Dizziness [Unknown]
  - Malignant neoplasm progression [Unknown]
  - Blood pressure increased [Unknown]
  - Oxygen saturation decreased [Unknown]
  - Heart rate increased [Unknown]
  - Pain [Unknown]
  - Frequent bowel movements [Unknown]
  - Body temperature decreased [Unknown]
  - Muscle spasms [Unknown]

NARRATIVE: CASE EVENT DATE: 20160311
